FAERS Safety Report 7335455-6 (Version None)
Quarter: 2011Q1

REPORT INFORMATION
  Report Type: 
  Country: None (occurrence: None)
  Receive Date: 20110307
  Receipt Date: 20110302
  Transmission Date: 20110831
  Serious: Yes (Hospitalization)
  Sender: FDA-Public Use
  Company Number: US-BRISTOL-MYERS SQUIBB COMPANY-15587041

PATIENT
  Age: 71 Year
  Sex: Male
  Weight: 87 kg

DRUGS (5)
  1. TAXOL [Suspect]
     Indication: OESOPHAGEAL ADENOCARCINOMA
     Route: 042
     Dates: start: 20110118
  2. LISINOPRIL [Concomitant]
  3. MORPHINE SULFATE [Concomitant]
     Dosage: LIQUID
  4. ERBITUX [Suspect]
     Indication: OESOPHAGEAL ADENOCARCINOMA
     Dosage: LAST DOSE ON 15FEB2011
     Route: 042
     Dates: start: 20110118
  5. CISPLATIN [Suspect]
     Indication: OESOPHAGEAL ADENOCARCINOMA
     Dosage: LAST DOSE ON 15FEB2011.
     Route: 042
     Dates: start: 20110118

REACTIONS (1)
  - ATRIAL FIBRILLATION [None]
